FAERS Safety Report 13759896 (Version 5)
Quarter: 2018Q4

REPORT INFORMATION
  Report Type: Report from Study
  Country: CA (occurrence: CA)
  Receive Date: 20170717
  Receipt Date: 20181212
  Transmission Date: 20190204
  Serious: Yes (Other)
  Sender: FDA-Public Use
  Company Number: CA-INCYTE CORPORATION-2014IN001839

PATIENT

DRUGS (9)
  1. CALCIUM [Concomitant]
     Active Substance: CALCIUM
     Indication: PRODUCT USED FOR UNKNOWN INDICATION
     Dosage: UNK
     Route: 065
  2. TYLENOL ARTHRITIS PAIN [Concomitant]
     Active Substance: ACETAMINOPHEN
     Indication: PRODUCT USED FOR UNKNOWN INDICATION
     Dosage: UNK
     Route: 065
  3. JAKAVI [Suspect]
     Active Substance: RUXOLITINIB
     Indication: MYELOFIBROSIS
     Dosage: 20 MG, BID
     Route: 048
     Dates: start: 20140520
  4. ZINC. [Concomitant]
     Active Substance: ZINC
     Indication: PRODUCT USED FOR UNKNOWN INDICATION
     Dosage: UNK
     Route: 065
  5. JAKAVI [Suspect]
     Active Substance: RUXOLITINIB
     Dosage: 10 MG, BID
     Route: 048
  6. JAKAVI [Suspect]
     Active Substance: RUXOLITINIB
     Dosage: 5 MG, BID
     Route: 048
  7. ACYCLOVIR. [Concomitant]
     Active Substance: ACYCLOVIR
     Indication: PRODUCT USED FOR UNKNOWN INDICATION
     Dosage: UNK
     Route: 065
  8. JAKAVI [Suspect]
     Active Substance: RUXOLITINIB
     Dosage: 15 MG, QD
     Route: 048
     Dates: start: 20140729
  9. VITAMIN D [Concomitant]
     Active Substance: CHOLECALCIFEROL
     Indication: PRODUCT USED FOR UNKNOWN INDICATION
     Dosage: UNK
     Route: 065

REACTIONS (26)
  - Muscle spasms [Unknown]
  - Glucose tolerance impaired [Unknown]
  - Impaired healing [Unknown]
  - Haemoglobin decreased [Unknown]
  - Bone pain [Recovering/Resolving]
  - Skin exfoliation [Unknown]
  - Pigmentation disorder [Unknown]
  - Memory impairment [Unknown]
  - Nail disorder [Unknown]
  - Pulmonary embolism [Unknown]
  - Burning sensation [Unknown]
  - Pruritus generalised [Recovered/Resolved]
  - Hypoaesthesia [Not Recovered/Not Resolved]
  - Skin burning sensation [Recovered/Resolved]
  - Deep vein thrombosis [Unknown]
  - Nasopharyngitis [Unknown]
  - Peripheral swelling [Not Recovered/Not Resolved]
  - Tenderness [Unknown]
  - Back pain [Not Recovered/Not Resolved]
  - Pain in extremity [Not Recovered/Not Resolved]
  - Weight decreased [Unknown]
  - Stress [Unknown]
  - Foot fracture [Unknown]
  - Fatigue [Not Recovered/Not Resolved]
  - Erythema [Unknown]
  - Pain of skin [Unknown]
